FAERS Safety Report 7462477-7 (Version None)
Quarter: 2011Q2

REPORT INFORMATION
  Report Type: 
  Country: None (occurrence: None)
  Receive Date: 20110506
  Receipt Date: 20110310
  Transmission Date: 20111010
  Serious: No
  Sender: FDA-Public Use
  Company Number: US-BAYER-2011-022146

PATIENT
  Age: 82 Year
  Sex: Female

DRUGS (5)
  1. SYNTHROID [Concomitant]
  2. DILTIAZEM [Concomitant]
  3. CRESTOR [Concomitant]
  4. AVELOX [Suspect]
     Indication: FURUNCLE
     Dosage: 400 MG, QD
     Route: 048
     Dates: start: 20110301, end: 20110305
  5. COUMADIN [Concomitant]

REACTIONS (9)
  - OROPHARYNGEAL PAIN [None]
  - DYSPHONIA [None]
  - DIZZINESS [None]
  - FEELING ABNORMAL [None]
  - DRY THROAT [None]
  - DIARRHOEA [None]
  - CONFUSIONAL STATE [None]
  - FEELING JITTERY [None]
  - NERVOUSNESS [None]
